FAERS Safety Report 13370132 (Version 1)
Quarter: 2017Q1

REPORT INFORMATION
  Report Type: Spontaneous
  Country: GB (occurrence: GB)
  Receive Date: 20170324
  Receipt Date: 20170324
  Transmission Date: 20170429
  Serious: Yes (Other)
  Sender: FDA-Public Use
  Company Number: GB-MYLANLABS-2017M1017881

PATIENT

DRUGS (2)
  1. CLOMIPRAMINE [Suspect]
     Active Substance: CLOMIPRAMINE
     Indication: DEPRESSION
     Dosage: 75 MG, QD
  2. TRIDESTRA [Interacting]
     Active Substance: ESTRADIOL VALERATE\MEDROXYPROGESTERONE ACETATE
     Indication: OSTEOPOROSIS PROPHYLAXIS
     Dosage: 1 DF, UNK
     Route: 048
     Dates: start: 20170216, end: 20170302

REACTIONS (2)
  - Mania [Recovered/Resolved]
  - Labelled drug-drug interaction medication error [Unknown]

NARRATIVE: CASE EVENT DATE: 20170226
